FAERS Safety Report 19803583 (Version 1)
Quarter: 2021Q3

REPORT INFORMATION
  Report Type: Spontaneous
  Country: US (occurrence: US)
  Receive Date: 20210902
  Receipt Date: 20210902
  Transmission Date: 20211014
  Serious: No
  Sender: FDA-Public Use
  Company Number: None

PATIENT
  Sex: Male
  Weight: 89 kg

DRUGS (11)
  1. FLOMAX [Concomitant]
     Active Substance: TAMSULOSIN HYDROCHLORIDE
  2. POTASSIUM [Concomitant]
     Active Substance: POTASSIUM
  3. FISH OIL [Concomitant]
     Active Substance: FISH OIL
  4. TAMSULOSIN [Concomitant]
     Active Substance: TAMSULOSIN
  5. PREDNISONE. [Concomitant]
     Active Substance: PREDNISONE
  6. ABIRATERONE 250 MG TABLETS [Suspect]
     Active Substance: ABIRATERONE
     Indication: PROSTATE CANCER
     Route: 048
     Dates: start: 20210707, end: 20210902
  7. ATORBVASTATIN [Concomitant]
  8. LOSARTAN/HCTZ [Concomitant]
     Active Substance: HYDROCHLOROTHIAZIDE\LOSARTAN
  9. ZOLOFT [Concomitant]
     Active Substance: SERTRALINE HYDROCHLORIDE
  10. XGEVA [Concomitant]
     Active Substance: DENOSUMAB
  11. ASPIRIN. [Concomitant]
     Active Substance: ASPIRIN

REACTIONS (1)
  - Disease progression [None]
